FAERS Safety Report 18936097 (Version 1)
Quarter: 2021Q1

REPORT INFORMATION
  Report Type: Spontaneous
  Country: US (occurrence: US)
  Receive Date: 20210224
  Receipt Date: 20210224
  Transmission Date: 20210420
  Serious: No
  Sender: FDA-Public Use
  Company Number: US-TERSERA THERAPEUTICS LLC-2020TRS002308

PATIENT

DRUGS (3)
  1. PRIALT [Suspect]
     Active Substance: ZICONOTIDE ACETATE
     Indication: PAIN
     Dosage: 1.8513 MCG, QD (CONCENTRATION 4 MCG/ML)
     Route: 037
  2. BACLOFEN. [Suspect]
     Active Substance: BACLOFEN
     Indication: PAIN
     Dosage: 20.827 MCG, QD
     Route: 037
  3. DILAUDID [Suspect]
     Active Substance: HYDROMORPHONE HYDROCHLORIDE
     Indication: PAIN
     Dosage: 3.7026 MCG, QD
     Route: 037

REACTIONS (4)
  - Implant site pain [Unknown]
  - Implant site bruising [Unknown]
  - Wrong technique in device usage process [Unknown]
  - Off label use [Unknown]

NARRATIVE: CASE EVENT DATE: 20191218
